FAERS Safety Report 7003322-3 (Version None)
Quarter: 2010Q3

REPORT INFORMATION
  Report Type: 
  Country: None (occurrence: None)
  Receive Date: 20100920
  Receipt Date: 20100714
  Transmission Date: 20110219
  Serious: Yes (Other)
  Sender: FDA-Public Use
  Company Number: A0870440A

PATIENT
  Age: 56 Year
  Sex: Male

DRUGS (13)
  1. LAMICTAL [Suspect]
     Dosage: 25MG PER DAY
     Route: 048
     Dates: start: 20100630
  2. KEPPRA [Concomitant]
  3. CATAPRES-TTS-1 [Concomitant]
  4. LABETALOL HCL [Concomitant]
  5. PROCARDIA [Concomitant]
  6. BACLOFEN [Concomitant]
  7. LACTULOSE [Concomitant]
  8. SIMVASTATIN [Concomitant]
  9. SYNTHROID [Concomitant]
  10. PAMELOR [Concomitant]
  11. VALIUM [Concomitant]
  12. TRILIPIX [Concomitant]
  13. ASPIRIN [Concomitant]

REACTIONS (2)
  - HALLUCINATION [None]
  - HALLUCINATION, VISUAL [None]
